FAERS Safety Report 17543939 (Version 1)
Quarter: 2020Q1

REPORT INFORMATION
  Report Type: Spontaneous
  Country: DE (occurrence: DE)
  Receive Date: 20200316
  Receipt Date: 20200316
  Transmission Date: 20200409
  Serious: Yes (Hospitalization)
  Sender: FDA-Public Use
  Company Number: DE-TEVA-2020-DE-1200253

PATIENT
  Age: 64 Year
  Sex: Male

DRUGS (6)
  1. METOPROLOL. [Concomitant]
     Active Substance: METOPROLOL
     Dosage: 100 MG, 1-0-0-0
  2. MIRTAZAPIN [Concomitant]
     Active Substance: MIRTAZAPINE
     Dosage: 45 MG, 0.5-0-0.5-0
  3. ULUNAR BREEZHALER 85MIKROGRAMM/43MIKROGRAMM [Concomitant]
     Dosage: 85|43 MICROGRAM, NK
  4. CLOPIDOGREL [Suspect]
     Active Substance: CLOPIDOGREL BISULFATE
     Dosage: 75 MG, 1-0-0-0
     Route: 065
  5. EZETIMIB/SIMVASTATIN [Concomitant]
     Dosage: 10|20 MG, 0-0-1-0
  6. ACETYLSALICYLSAEURE [Suspect]
     Active Substance: ASPIRIN
     Dosage: 100 MG, 1-0-0-0
     Route: 065

REACTIONS (2)
  - Haematemesis [Unknown]
  - Abdominal pain upper [Unknown]
